FAERS Safety Report 14328487 (Version 1)
Quarter: 2017Q4

REPORT INFORMATION
  Report Type: Spontaneous
  Country: FR (occurrence: FR)
  Receive Date: 20171227
  Receipt Date: 20171227
  Transmission Date: 20180321
  Serious: Yes (Other)
  Sender: FDA-Public Use
  Company Number: FR-GLAXOSMITHKLINE-FR2017197226

PATIENT
  Age: 65 Year
  Sex: Female

DRUGS (4)
  1. VISCERALGINE FORTE (METAMIZOLE SODIUM\TIEMONIUM METHYLSULFATE) [Suspect]
     Active Substance: METAMIZOLE SODIUM\TIEMONIUM METHYLSULFATE
     Indication: PAIN
     Dosage: NP
     Route: 048
  2. RODOGYL [Suspect]
     Active Substance: METRONIDAZOLE\SPIRAMYCIN
     Indication: ANTIBIOTIC THERAPY
     Dosage: NP
     Route: 048
  3. VOLTARENE [Suspect]
     Active Substance: DICLOFENAC SODIUM
     Indication: PAIN
     Dosage: NP
     Route: 048
  4. BACTRIM [Suspect]
     Active Substance: SULFAMETHOXAZOLE\TRIMETHOPRIM
     Indication: ANTIBIOTIC THERAPY
     Dosage: NP
     Route: 048

REACTIONS (2)
  - Urticaria [Recovered/Resolved]
  - Angioedema [Recovered/Resolved]
